FAERS Safety Report 8736153 (Version 2)
Quarter: 2012Q4

REPORT INFORMATION
  Report Type: 
  Country: US (occurrence: US)
  Receive Date: 20120822
  Receipt Date: 20121203
  Transmission Date: 20130627
  Serious: Yes (Hospitalization)
  Sender: FDA-Public Use
  Company Number: US-ELI_LILLY_AND_COMPANY-US201208004403

PATIENT
  Age: 25 Year
  Sex: Female

DRUGS (2)
  1. ZYPREXA RELPREVV [Suspect]
     Dosage: 210 mg, unknown
     Route: 030
  2. ZYPREXA RELPREVV [Suspect]
     Dosage: 300 mg, qd
     Route: 030
     Dates: end: 20121012

REACTIONS (4)
  - Hospitalisation [Recovered/Resolved]
  - Substance abuse [Recovering/Resolving]
  - Hospitalisation [Recovering/Resolving]
  - Psychotic disorder [Recovering/Resolving]
